FAERS Safety Report 4364840-X (Version None)
Quarter: 2004Q2

REPORT INFORMATION
  Report Type: 
  Country: None (occurrence: None)
  Receive Date: 20040526
  Receipt Date: 20040330
  Transmission Date: 20050107
  Serious: No
  Sender: FDA-Public Use
  Company Number: US-GLAXOSMITHKLINE-A0505119A

PATIENT
  Age: 71 Year
  Sex: Female

DRUGS (9)
  1. LOTRONEX [Suspect]
     Indication: IRRITABLE BOWEL SYNDROME
     Dosage: 1MG PER DAY
     Route: 048
     Dates: start: 20040220
  2. NEXIUM [Concomitant]
  3. HYZAAR [Concomitant]
  4. MULTIVITAMIN [Concomitant]
  5. TIAZAC [Concomitant]
  6. CALCIUM SUPPLEMENT [Concomitant]
  7. VITAMIN C [Concomitant]
  8. HORMONE [Concomitant]
     Route: 048
  9. VITAMIN E [Concomitant]

REACTIONS (1)
  - DRUG INEFFECTIVE [None]
